FAERS Safety Report 5761282-7 (Version None)
Quarter: 2008Q2

REPORT INFORMATION
  Report Type: 
  Country: None (occurrence: None)
  Receive Date: 20080606
  Receipt Date: 20080530
  Transmission Date: 20081010
  Serious: Yes (Death, Congenital Anomaly)
  Sender: FDA-Public Use
  Company Number: JP-ASTRAZENECA-2005SE04269

PATIENT
  Sex: Female
  Weight: 1 kg

DRUGS (10)
  1. BLOPRESS [Suspect]
     Indication: BLOOD PRESSURE INCREASED
     Route: 064
     Dates: start: 20041027
  2. BLOPRESS [Suspect]
     Route: 064
  3. BLOPRESS [Suspect]
     Route: 064
     Dates: end: 20050308
  4. FERROMIA [Concomitant]
     Route: 064
  5. MARZULENE S [Concomitant]
     Route: 064
  6. ALOSITOL [Concomitant]
     Route: 064
  7. ADALAT [Concomitant]
     Route: 064
  8. LASIX [Concomitant]
     Route: 064
  9. LASIX [Concomitant]
     Route: 064
  10. LASIX [Concomitant]
     Route: 064

REACTIONS (2)
  - POTTER'S SYNDROME [None]
  - RENAL IMPAIRMENT [None]
